FAERS Safety Report 22668749 (Version 2)
Quarter: 2024Q1

REPORT INFORMATION
  Report Type: Spontaneous
  Country: US (occurrence: US)
  Receive Date: 20230704
  Receipt Date: 20240103
  Transmission Date: 20240409
  Serious: Yes (Hospitalization)
  Sender: FDA-Public Use
  Company Number: US-Accord-306233

PATIENT
  Age: 65 Year
  Sex: Male
  Weight: 102.55 kg

DRUGS (15)
  1. BENDAMUSTINE [Suspect]
     Active Substance: BENDAMUSTINE
     Indication: Diffuse large B-cell lymphoma stage IV
     Dosage: (ON DAYS 1 AND 2 OF EACH 21-DAY CYCLE)?1Q3W?C1D1
     Route: 042
     Dates: start: 20230201
  2. RITUXIMAB [Suspect]
     Active Substance: RITUXIMAB
     Indication: Diffuse large B-cell lymphoma stage IV
     Dosage: 1Q3W?C1D1
     Route: 042
     Dates: start: 20230201
  3. TYLENOL [Concomitant]
     Active Substance: ACETAMINOPHEN
     Dates: start: 20230201, end: 20230201
  4. ZOVIRAX [Concomitant]
     Active Substance: ACYCLOVIR
     Dates: start: 20230201
  5. ZYLOPRIM [Concomitant]
     Active Substance: ALLOPURINOL
     Dates: start: 20230201
  6. BENADRYL [Concomitant]
     Active Substance: DIPHENHYDRAMINE HYDROCHLORIDE
     Dates: start: 20230201, end: 20230201
  7. ELIQUIS [Concomitant]
     Active Substance: APIXABAN
     Dates: start: 202007
  8. SODIUM CHLORIDE [Concomitant]
     Active Substance: SODIUM CHLORIDE
     Dosage: INTRAVENOUS FLUID
     Route: 042
     Dates: start: 20230202, end: 20230202
  9. ZOFRAN [Concomitant]
     Active Substance: ONDANSETRON HYDROCHLORIDE
     Indication: Nausea
     Dates: start: 20230206
  10. ALOXI [Concomitant]
     Active Substance: PALONOSETRON HYDROCHLORIDE
     Dates: start: 20230201
  11. COMPAZINE [Concomitant]
     Active Substance: PROCHLORPERAZINE MALEATE
     Dates: start: 20230206
  12. PROTONIX [Concomitant]
     Active Substance: PANTOPRAZOLE SODIUM
     Dates: start: 20230204
  13. DECADRON [Concomitant]
     Active Substance: DEXAMETHASONE
     Dates: start: 20230201
  14. BACTRIM DS [Concomitant]
     Active Substance: SULFAMETHOXAZOLE\TRIMETHOPRIM
     Dates: start: 20230201
  15. ACETAMINOPHEN [Concomitant]
     Active Substance: ACETAMINOPHEN
     Dates: start: 20230213, end: 20230213

REACTIONS (2)
  - Pyrexia [Recovered/Resolved]
  - Rash macular [Recovered/Resolved]

NARRATIVE: CASE EVENT DATE: 20230216
